FAERS Safety Report 10267995 (Version 1)
Quarter: 2014Q2

REPORT INFORMATION
  Report Type: Spontaneous
  Country: US (occurrence: None)
  Receive Date: 20140626
  Receipt Date: 20140626
  Transmission Date: 20141212
  Serious: No
  Sender: FDA-Public Use
  Company Number: None

PATIENT
  Age: 51 Year
  Sex: Female
  Weight: 86.18 kg

DRUGS (1)
  1. LISINOPRIL 10 MG [Suspect]
     Indication: HYPERTENSION
     Dosage: 2 PILLS, ONCE DAILY, TAKEN BY MOUTH?
     Route: 048
     Dates: start: 20140101, end: 20140623

REACTIONS (3)
  - Dizziness [None]
  - Cough [None]
  - Nausea [None]
